FAERS Safety Report 4470308-2 (Version None)
Quarter: 2004Q3

REPORT INFORMATION
  Report Type: 
  Country: None (occurrence: None)
  Receive Date: 20040910
  Receipt Date: 20040618
  Transmission Date: 20050211
  Serious: No
  Sender: FDA-Public Use
  Company Number: 2004-00094

PATIENT

DRUGS (1)
  1. VELCADE [Suspect]

REACTIONS (1)
  - NEUROPATHY PERIPHERAL [None]
